FAERS Safety Report 15636616 (Version 1)
Quarter: 2018Q4

REPORT INFORMATION
  Report Type: Spontaneous
  Country: GB (occurrence: GB)
  Receive Date: 20181120
  Receipt Date: 20181120
  Transmission Date: 20190205
  Serious: Yes (Other)
  Sender: FDA-Public Use
  Company Number: GB-AUROBINDO-AUR-APL-2010-01320

PATIENT
  Age: 15 Year
  Sex: Female

DRUGS (3)
  1. RISPERIDONE. [Concomitant]
     Active Substance: RISPERIDONE
     Indication: PRODUCT USED FOR UNKNOWN INDICATION
     Dosage: UNK UNK,TWO TIMES A DAY,,2 MG
     Route: 048
     Dates: start: 20100125, end: 20100319
  2. FLUOXETINE [Suspect]
     Active Substance: FLUOXETINE HYDROCHLORIDE
     Indication: SCHIZOAFFECTIVE DISORDER
     Dosage: 60 MILLIGRAM, UNK
     Route: 048
     Dates: start: 20100121, end: 20100330
  3. OLANZAPINE. [Suspect]
     Active Substance: OLANZAPINE
     Indication: PSYCHOTIC DISORDER
     Dosage: 5 MILLIGRAM, UNK
     Route: 048
     Dates: start: 20100322, end: 20100329

REACTIONS (1)
  - Tardive dyskinesia [Recovered/Resolved]

NARRATIVE: CASE EVENT DATE: 20100329
